FAERS Safety Report 6114174-8 (Version None)
Quarter: 2009Q1

REPORT INFORMATION
  Report Type: 
  Country: None (occurrence: None)
  Receive Date: 20090312
  Receipt Date: 20080507
  Transmission Date: 20090719
  Serious: No
  Sender: FDA-Public Use
  Company Number: US-ABBOTT-08P-163-0451152-00

PATIENT
  Sex: Female
  Weight: 108.05 kg

DRUGS (14)
  1. DEPAKOTE [Suspect]
     Indication: CONVULSION
     Dosage: ENTERIC COATED TABLETS
     Dates: start: 20070918
  2. DEPAKOTE [Suspect]
     Route: 048
     Dates: start: 20061115, end: 20070918
  3. FENOFIBRATE [Concomitant]
     Indication: BLOOD CHOLESTEROL INCREASED
     Route: 048
     Dates: start: 20080318
  4. FENOFIBRATE [Concomitant]
     Indication: BLOOD TRIGLYCERIDES INCREASED
  5. VICODIN [Concomitant]
     Indication: PAIN
     Dosage: 5/500 MG
     Route: 048
     Dates: start: 20071030
  6. SIMVASTATIN [Concomitant]
     Indication: BLOOD CHOLESTEROL INCREASED
     Route: 048
     Dates: start: 20070727
  7. PAROXETINE HYDROCHLORIDE [Concomitant]
     Indication: DEPRESSION
     Route: 048
     Dates: start: 20070430
  8. DYAZIDE [Concomitant]
     Indication: HYPERTENSION
     Dosage: 37.5/25MG DAILY
     Route: 048
     Dates: start: 20070423
  9. CLONIDINE [Concomitant]
     Indication: HYPERTENSION
     Route: 048
     Dates: start: 20070423
  10. MINOXIDIL [Concomitant]
     Indication: HYPERTENSION
     Route: 048
     Dates: start: 20070130
  11. POTASSIUM CHLORIDE [Concomitant]
     Indication: ELECTROLYTE SUBSTITUTION THERAPY
     Route: 048
     Dates: start: 20061115
  12. VERAPAMIL [Concomitant]
     Indication: HYPERTENSION
     Route: 048
     Dates: start: 20061115
  13. TOPRAL XR [Concomitant]
     Indication: DEPRESSION
     Route: 048
     Dates: start: 20061115
  14. LAMOTRIGINE [Concomitant]
     Indication: CONVULSION
     Dosage: ONE IN MORNING AND 0.5 TAB IN EVENING
     Route: 048
     Dates: start: 20061105

REACTIONS (4)
  - AMMONIA INCREASED [None]
  - FALL [None]
  - LETHARGY [None]
  - VOMITING [None]
